FAERS Safety Report 5262315-7 (Version None)
Quarter: 2007Q1

REPORT INFORMATION
  Report Type: 
  Country: None (occurrence: None)
  Receive Date: 20070312
  Receipt Date: 20070226
  Transmission Date: 20070707
  Serious: Yes (Other)
  Sender: FDA-Public Use
  Company Number: PHEH2007US02479

PATIENT
  Age: 50 Year
  Sex: Female

DRUGS (9)
  1. GLEEVEC [Suspect]
     Indication: CHRONIC MYELOID LEUKAEMIA
     Dosage: 400 MG, QD
     Route: 048
     Dates: start: 20020401, end: 20040101
  2. GLEEVEC [Suspect]
     Dosage: 600 MG, QD
     Route: 048
     Dates: start: 20040101, end: 20061001
  3. GLEEVEC [Suspect]
     Dosage: 400 MG, QD
     Route: 048
     Dates: start: 20061001
  4. ALLEGRA [Concomitant]
  5. ZYRTEC [Concomitant]
  6. ATENOLOL [Concomitant]
  7. ESTRACE [Concomitant]
  8. VITAMIN CAP [Concomitant]
  9. CALTRATE [Concomitant]

REACTIONS (2)
  - EYE INFLAMMATION [None]
  - UVEITIS [None]
